FAERS Safety Report 9716851 (Version 1)
Quarter: 2013Q4

REPORT INFORMATION
  Report Type: Spontaneous
  Country: US (occurrence: US)
  Receive Date: 20131127
  Receipt Date: 20131127
  Transmission Date: 20140711
  Serious: Yes (Hospitalization)
  Sender: FDA-Public Use
  Company Number: US-ASTRAZENECA-2013SE85112

PATIENT
  Sex: Male

DRUGS (3)
  1. CRESTOR [Suspect]
     Route: 048
     Dates: start: 201310, end: 201311
  2. METFORMIN [Suspect]
     Route: 048
     Dates: start: 201310
  3. JANUVIA [Suspect]
     Dates: start: 201310

REACTIONS (2)
  - Pancreatitis [Recovering/Resolving]
  - Diabetes mellitus [Unknown]
